FAERS Safety Report 5776501-0 (Version None)
Quarter: 2008Q2

REPORT INFORMATION
  Report Type: 
  Country: None (occurrence: None)
  Receive Date: 20080617
  Receipt Date: 20080617
  Transmission Date: 20081010
  Serious: Yes (Disabling, Other)
  Sender: FDA-Public Use
  Company Number: None

PATIENT
  Age: 57 Year
  Sex: Female
  Weight: 75.2971 kg

DRUGS (1)
  1. ENBREL [Suspect]
     Dosage: 1 PREFILLED VIAL 1 X @ WEEK SQ
     Route: 058
     Dates: start: 20000102, end: 20080520

REACTIONS (4)
  - FALL [None]
  - HYPOAESTHESIA [None]
  - MULTIPLE SCLEROSIS [None]
  - PERONEAL NERVE PALSY [None]
